FAERS Safety Report 23713778 (Version 4)
Quarter: 2024Q2

REPORT INFORMATION
  Report Type: Report from Study
  Country: US (occurrence: US)
  Receive Date: 20240405
  Receipt Date: 20240529
  Transmission Date: 20240716
  Serious: Yes (Hospitalization, Other)
  Sender: FDA-Public Use
  Company Number: US-ABBVIE-5701558

PATIENT
  Sex: Male

DRUGS (2)
  1. DUOPA [Suspect]
     Active Substance: CARBIDOPA\LEVODOPA
     Indication: Parkinson^s disease
     Dosage: MORNING DOSE: 11ML, CONTINUOUS DOSE: 3.1ML/HR, EXTRA DOSE: 2ML EVERY 3 HOURS AS NEEDED.?FREQUENCY...
     Route: 050
     Dates: start: 202307
  2. DUOPA [Suspect]
     Active Substance: CARBIDOPA\LEVODOPA
     Dosage: MORNING DOSE: 11ML, CONTINUOUS DOSE: 3.1ML/HR, EXTRA DOSE: 2ML EVERY 3 HOURS AS NEEDED.?FREQUENCY...
     Route: 050
     Dates: start: 20230823

REACTIONS (12)
  - Transient ischaemic attack [Unknown]
  - Hypoacusis [Unknown]
  - Rehabilitation therapy [Unknown]
  - Fall [Recovered/Resolved]
  - Contusion [Unknown]
  - Device issue [Unknown]
  - Fall [Recovering/Resolving]
  - Gait disturbance [Unknown]
  - Rash papular [Unknown]
  - Fall [Recovering/Resolving]
  - Device dislocation [Unknown]
  - Stoma site discharge [Unknown]

NARRATIVE: CASE EVENT DATE: 20240101
